FAERS Safety Report 18134783 (Version 2)
Quarter: 2020Q3

REPORT INFORMATION
  Report Type: Spontaneous
  Country: US (occurrence: US)
  Receive Date: 20200811
  Receipt Date: 20200902
  Transmission Date: 20201103
  Serious: Yes (Other)
  Sender: FDA-Public Use
  Company Number: US-PFIZER INC-2020306056

PATIENT
  Age: 82 Year
  Sex: Female

DRUGS (5)
  1. SPIRONOLACTONE. [Concomitant]
     Active Substance: SPIRONOLACTONE
     Dosage: 25 MG, DAILY
     Route: 048
  2. ATORVASTATIN [Concomitant]
     Active Substance: ATORVASTATIN
     Dosage: 80 MG, DAILY(TAKE 1 TABLET (S) EVERY DAY BY ORAL ROUTE)
     Route: 048
  3. PREMARIN [Suspect]
     Active Substance: ESTROGENS, CONJUGATED
     Dosage: UNK, 2X/WEEK(INSERT 1 APPLICATION (S) TWICE A WEEK BY VAGINAL ROUTE)
     Route: 067
  4. LEVOTHYROXINE. [Concomitant]
     Active Substance: LEVOTHYROXINE
     Dosage: 50 UG, DAILY(TAKE 1 TABLET (S) EVERY DAY BY ORAL ROUTE)
     Route: 048
  5. PANTOPRAZOLE [Concomitant]
     Active Substance: PANTOPRAZOLE
     Dosage: 40 MG, DAILY(1 TABLET BY MOUTH EVERY DAY AS DIRECTED)
     Route: 048

REACTIONS (1)
  - Cardiac disorder [Unknown]
